FAERS Safety Report 12978574 (Version 5)
Quarter: 2020Q1

REPORT INFORMATION
  Report Type: Spontaneous
  Country: US (occurrence: US)
  Receive Date: 20161128
  Receipt Date: 20200121
  Transmission Date: 20200409
  Serious: No
  Sender: FDA-Public Use
  Company Number: US-PFIZER INC-2016545959

PATIENT
  Age: 88 Year
  Sex: Female

DRUGS (18)
  1. AMARYL [Concomitant]
     Active Substance: GLIMEPIRIDE
     Dosage: 1 MG, UNK
  2. MACRODANTIN [Concomitant]
     Active Substance: NITROFURANTOIN
     Dosage: 100 MG, 4X/DAY
     Route: 048
  3. NITROSTAT [Concomitant]
     Active Substance: NITROGLYCERIN
     Indication: CHEST PAIN
     Dosage: 0.4 MG, UNK (DISSOLVE 1 TAB UNDER TONGUE AND REPEAT DOSE. MAX 3 TABS IN 15 MINUTES)
     Route: 060
  4. MICRO-K [Concomitant]
     Active Substance: POTASSIUM CHLORIDE
     Dosage: 20 MEQ, DAILY
     Route: 048
  5. CELEBREX [Suspect]
     Active Substance: CELECOXIB
     Indication: BACK PAIN
     Dosage: 200 MG, DAILY (EVERY MORNING)
     Route: 048
     Dates: start: 20170220
  6. KLOR-CON [Concomitant]
     Active Substance: POTASSIUM CHLORIDE
     Dosage: 20 MEQ, DAILY [2 TABLETS DAILY]
     Route: 048
  7. LEVOTHYROXINE. [Concomitant]
     Active Substance: LEVOTHYROXINE
     Dosage: 100 UG, UNK
  8. K-DUR [Concomitant]
     Active Substance: POTASSIUM CHLORIDE
     Dosage: 20 MEQ, DAILY [2 TABLETS DAILY]
     Route: 048
  9. CELEBREX [Suspect]
     Active Substance: CELECOXIB
     Indication: SCOLIOSIS
     Dosage: 200 MG, 1X/DAY
     Route: 048
  10. PLETAL [Concomitant]
     Active Substance: CILOSTAZOL
     Dosage: 50 MG, 2X/DAY(0.5 TABLETS, 2 (TWO) TIMES DAILY BEFORE MEALS TAKE 30 MINUTES BEFORE MEALS)
     Route: 048
  11. COZAAR [Concomitant]
     Active Substance: LOSARTAN POTASSIUM
     Dosage: 50 MG, 2X/DAY
     Route: 048
  12. TOPROL XL [Concomitant]
     Active Substance: METOPROLOL SUCCINATE
     Dosage: 25 MG, DAILY
     Route: 048
  13. KENALOG [Concomitant]
     Active Substance: TRIAMCINOLONE ACETONIDE
     Dosage: UNK, (AS DIRECTED)
  14. OSCAL D [Concomitant]
     Active Substance: CALCIUM CARBONATE\CHOLECALCIFEROL
     Dosage: 1 DF, 2X/DAY (500 MG (1250 MG)-200 UNIT PER TABLET)
     Route: 048
  15. JANUVIA [Concomitant]
     Active Substance: SITAGLIPTIN PHOSPHATE
     Dosage: 50 MG, DAILY  (SWALLOW WHOLE. DO NOT SPILT, BREAK OR CHEW)
     Route: 048
  16. AMBIEN [Concomitant]
     Active Substance: ZOLPIDEM TARTRATE
     Dosage: 5 MG, AS NEEDED
  17. ESTRACE [Concomitant]
     Active Substance: ESTRADIOL
     Dosage: 2 G, 2X/WEEK (0.1 MG/GRAM)
     Route: 067
  18. LOPID [Concomitant]
     Active Substance: GEMFIBROZIL
     Dosage: 600 MG, 2X/DAY (BEFORE MEALS)
     Route: 048

REACTIONS (1)
  - Fall [Unknown]

NARRATIVE: CASE EVENT DATE: 20161121
